FAERS Safety Report 9050034 (Version 1)
Quarter: 2013Q1

REPORT INFORMATION
  Report Type: Spontaneous
  Country: US (occurrence: US)
  Receive Date: 20130205
  Receipt Date: 20130205
  Transmission Date: 20140127
  Serious: Yes (Hospitalization)
  Sender: FDA-Public Use
  Company Number: US-GILEAD-2013-0069274

PATIENT
  Age: 79 None
  Sex: Male

DRUGS (11)
  1. LETAIRIS [Suspect]
     Indication: PULMONARY HYPERTENSION
     Dosage: 5 MG, QD
     Route: 048
     Dates: start: 20121226
  2. SILDENAFIL [Concomitant]
  3. LOSARTAN [Concomitant]
  4. METOPROLOL [Concomitant]
  5. NORVASC [Concomitant]
  6. WARFARIN [Concomitant]
  7. LASIX                              /00032601/ [Concomitant]
  8. TERAZOSIN [Concomitant]
  9. LANTUS [Concomitant]
  10. NOVOLOG [Concomitant]
  11. OXYGEN [Concomitant]

REACTIONS (5)
  - Transfusion [Unknown]
  - Lethargy [Unknown]
  - Anaemia [Unknown]
  - Dizziness [Unknown]
  - Asthenia [Unknown]
